FAERS Safety Report 7627669-2 (Version None)
Quarter: 2011Q3

REPORT INFORMATION
  Report Type: 
  Country: None (occurrence: None)
  Receive Date: 20110721
  Receipt Date: 20110706
  Transmission Date: 20111222
  Serious: Yes (Hospitalization)
  Sender: FDA-Public Use
  Company Number: IT-BAYER-2011-051713

PATIENT
  Age: 63 Year
  Sex: Male

DRUGS (8)
  1. OMEPRAZOLE [Concomitant]
     Dosage: DAILY DOSE 20 MG
     Route: 048
  2. SIMVASTATIN [Concomitant]
     Dosage: DAILY DOSE 20 MG
     Route: 048
  3. ACETYLSALICYLIC ACID SRT [Suspect]
     Indication: CORONARY ANGIOPLASTY
     Dosage: DAILY DOSE 1 DF
     Route: 048
     Dates: start: 20080101
  4. RAMIPRIL [Concomitant]
     Dosage: DAILY DOSE 5 MG
     Route: 048
  5. MINITRAN [Concomitant]
  6. LASIX [Concomitant]
     Indication: HYPERTENSION
     Dosage: DAILY DOSE 50 MG
     Route: 048
  7. LASITONE [Concomitant]
     Dosage: DAILY DOSE 1 DF
     Route: 048
  8. ALTIAZEM [Concomitant]
     Dosage: DAILY DOSE 150 MG
     Route: 048

REACTIONS (1)
  - ANAEMIA [None]
